FAERS Safety Report 24170722 (Version 2)
Quarter: 2024Q3

REPORT INFORMATION
  Report Type: Report from Study
  Country: US (occurrence: US)
  Receive Date: 20240805
  Receipt Date: 20240806
  Transmission Date: 20241016
  Serious: No
  Sender: ROCHE
  Company Number: US-ROCHE-10000048205

PATIENT
  Age: 36 Year
  Sex: Female
  Weight: 167.38 kg

DRUGS (1)
  1. OCREVUS [Suspect]
     Active Substance: OCRELIZUMAB
     Indication: Relapsing-remitting multiple sclerosis
     Dosage: INFUSE 300MG BY IV ONCE, THEN AGAIN IN 14 DAYS
     Route: 042
     Dates: start: 20220425, end: 20230703

REACTIONS (4)
  - Drug hypersensitivity [Not Recovered/Not Resolved]
  - Blood glucose increased [Unknown]
  - Fungal infection [Recovered/Resolved]
  - Pharyngeal disorder [Recovered/Resolved]

NARRATIVE: CASE EVENT DATE: 20220425
